FAERS Safety Report 5667533-1 (Version None)
Quarter: 2008Q1

REPORT INFORMATION
  Report Type: 
  Country: None (occurrence: None)
  Receive Date: 20080315
  Receipt Date: 20080124
  Transmission Date: 20080703
  Serious: No
  Sender: FDA-Public Use
  Company Number: US-ABBOTT-08P-163-0435375-00

PATIENT
  Sex: Female
  Weight: 167 kg

DRUGS (1)
  1. HUMIRA [Suspect]
     Indication: RHEUMATOID ARTHRITIS
     Route: 058
     Dates: start: 20071201

REACTIONS (4)
  - BACK INJURY [None]
  - CONCUSSION [None]
  - DIPLOPIA [None]
  - FALL [None]
